FAERS Safety Report 15076563 (Version 1)
Quarter: 2018Q2

REPORT INFORMATION
  Report Type: Spontaneous
  Country: US (occurrence: US)
  Receive Date: 20180607
  Receipt Date: 20180607
  Transmission Date: 20180711
  Serious: Yes (Life-Threatening, Disabling)
  Sender: FDA-Public Use
  Company Number: None

PATIENT

DRUGS (1)
  1. KYPROLIS [Suspect]
     Active Substance: CARFILZOMIB

REACTIONS (3)
  - Dyspnoea [None]
  - Exercise tolerance decreased [None]
  - Left atrial enlargement [None]

NARRATIVE: CASE EVENT DATE: 20151021
